FAERS Safety Report 20959939 (Version 1)
Quarter: 2022Q2

REPORT INFORMATION
  Report Type: Other
  Country: US (occurrence: None)
  Receive Date: 20220615
  Receipt Date: 20220615
  Transmission Date: 20220721
  Serious: Yes (Hospitalization)
  Sender: FDA-Public Use
  Company Number: US-Square-000075

PATIENT
  Age: 22 Year
  Sex: Male

DRUGS (3)
  1. ARIPIPRAZOLE [Suspect]
     Active Substance: ARIPIPRAZOLE
     Indication: Product used for unknown indication
     Dosage: TITRATED TO 20 MG
  2. RISPERIDONE [Concomitant]
     Active Substance: RISPERIDONE
     Indication: Product used for unknown indication
     Dosage: TITRATION TO 5 MG OVER THE NEXT 4DAYS
  3. ARIPIPRAZOLE [Suspect]
     Active Substance: ARIPIPRAZOLE
     Indication: Product used for unknown indication
     Dosage: 5 MG PER DAY AND INCREASED IN INCREMENTS OF 5 MG PER DAY UNTIL A 20-MG DOSE WAS ACHIEVED.

REACTIONS (3)
  - Treatment failure [Unknown]
  - Psychotic disorder [Unknown]
  - Agitation [Unknown]
